FAERS Safety Report 8422867-2 (Version None)
Quarter: 2012Q2

REPORT INFORMATION
  Report Type: 
  Country: None (occurrence: None)
  Receive Date: 20120608
  Receipt Date: 20120531
  Transmission Date: 20120825
  Serious: Yes (Hospitalization)
  Sender: FDA-Public Use
  Company Number: US-GLAXOSMITHKLINE-A0886809A

PATIENT
  Age: 50 Year
  Sex: Female
  Weight: 157.3 kg

DRUGS (6)
  1. NIASPAN [Concomitant]
  2. LIPITOR [Concomitant]
  3. ALTACE [Concomitant]
  4. AVANDIA [Suspect]
     Indication: TYPE 2 DIABETES MELLITUS
     Dosage: 8MG TWICE PER DAY
     Route: 048
     Dates: start: 19990726, end: 20070724
  5. PROTONIX [Concomitant]
  6. INSULIN [Concomitant]

REACTIONS (2)
  - CARDIAC FAILURE CONGESTIVE [None]
  - MYOCARDIAL INFARCTION [None]
